FAERS Safety Report 8886444 (Version 5)
Quarter: 2015Q1

REPORT INFORMATION
  Report Type: Report from Study
  Country: AU (occurrence: AU)
  Receive Date: 20121105
  Receipt Date: 20150213
  Transmission Date: 20150721
  Serious: Yes (Other)
  Sender: FDA-Public Use
  Company Number: PHHY2012AU100066

PATIENT
  Age: 23 Year
  Sex: Male
  Weight: 72 kg

DRUGS (5)
  1. CLOZARIL [Suspect]
     Active Substance: CLOZAPINE
     Dosage: 200 MG, UNK
     Route: 048
     Dates: start: 20121026, end: 201211
  2. CLOZARIL [Suspect]
     Active Substance: CLOZAPINE
     Dosage: 400 MG, UNK
     Route: 048
     Dates: start: 20121016
  3. CLOZARIL [Suspect]
     Active Substance: CLOZAPINE
     Dosage: 100 MG, UNK
     Route: 048
     Dates: start: 20101206
  4. CLOZARIL [Suspect]
     Active Substance: CLOZAPINE
     Indication: SCHIZOPHRENIA
     Dosage: 150 MG, UNK
     Route: 048
  5. CLOZARIL [Suspect]
     Active Substance: CLOZAPINE
     Dosage: 200 MG, UNK
     Route: 048
     Dates: start: 2010

REACTIONS (9)
  - Cardiomyopathy [Recovering/Resolving]
  - Mitral valve incompetence [Unknown]
  - Ventricular hypokinesia [Unknown]
  - Left ventricular dysfunction [Unknown]
  - Blood creatine phosphokinase increased [Recovered/Resolved]
  - Mental impairment [Unknown]
  - Tricuspid valve incompetence [Unknown]
  - Ejection fraction decreased [Unknown]
  - Dilatation ventricular [Unknown]

NARRATIVE: CASE EVENT DATE: 201105
